FAERS Safety Report 8515100-4 (Version None)
Quarter: 2012Q3

REPORT INFORMATION
  Report Type: 
  Country: None (occurrence: None)
  Receive Date: 20120717
  Receipt Date: 20120712
  Transmission Date: 20120928
  Serious: Yes (Death)
  Sender: FDA-Public Use
  Company Number: US-CELGENEUS-163-21880-12064052

PATIENT
  Sex: Female

DRUGS (9)
  1. CLINDAMYCIN HCL [Concomitant]
     Route: 065
  2. ADVIL [Concomitant]
     Route: 065
  3. ZOMETA [Concomitant]
     Route: 065
  4. FENTANYL [Concomitant]
     Route: 065
  5. BIOTIN [Concomitant]
     Route: 065
  6. REVLIMID [Suspect]
     Dosage: 5 MILLIGRAM
     Route: 048
     Dates: start: 20120123, end: 20120101
  7. MORPHINE SULFATE [Concomitant]
     Route: 065
  8. DILAUDID [Concomitant]
     Route: 065
  9. LIDODERM [Concomitant]
     Route: 065

REACTIONS (1)
  - MULTIPLE MYELOMA [None]
